FAERS Safety Report 8511771-7 (Version None)
Quarter: 2012Q3

REPORT INFORMATION
  Report Type: 
  Country: None (occurrence: None)
  Receive Date: 20120716
  Receipt Date: 20120704
  Transmission Date: 20120928
  Serious: Yes (Life-Threatening)
  Sender: FDA-Public Use
  Company Number: PT-OPTIMER-20120095

PATIENT
  Sex: Male

DRUGS (13)
  1. ALPRAZOLAM [Concomitant]
     Dosage: 0.25 MG, QHS
     Route: 048
     Dates: start: 20120622
  2. CARVEDILOL [Concomitant]
     Dosage: 6.25 MG, BID
     Route: 048
     Dates: start: 20120622
  3. INSULIN [Concomitant]
     Dosage: SLIDING SCALE, PRN
     Route: 058
     Dates: start: 20120622
  4. GLUCOSE [Concomitant]
     Dosage: 40 ML, PRN FOR BC UNDER 80
     Route: 042
     Dates: start: 20120622
  5. NPH INSULIN [Concomitant]
     Dosage: 10 UI, QHS
     Dates: start: 20120628
  6. DIFICLIR [Suspect]
     Indication: CLOSTRIDIAL INFECTION
     Dosage: 200 MG, BID
     Route: 048
     Dates: start: 20120626, end: 20120630
  7. AMLODIPINE [Concomitant]
     Dosage: 5 MG, PRN FOR BP OVER 170/110
  8. NPH INSULIN [Concomitant]
     Dosage: 14 UI, QAM
     Route: 058
     Dates: start: 20120628
  9. VITAMIN B COMPLEX CAP [Concomitant]
     Dosage: ^1-COMP^, QD
     Route: 048
     Dates: start: 20120622
  10. NIFEDIPINA [Concomitant]
     Dosage: 30 MG, QD
     Route: 048
     Dates: start: 20120628
  11. AMLODIPINE [Concomitant]
     Dosage: 5 MG, QD
     Route: 048
     Dates: start: 20120622
  12. ACETAMINOPHEN [Concomitant]
     Dosage: 1000 MG, PRN
     Route: 042
     Dates: start: 20120622
  13. ACIDO FOLICO [Concomitant]
     Dosage: 5 MG, QD
     Route: 048
     Dates: start: 20120622

REACTIONS (2)
  - ANGIOEDEMA [None]
  - DYSPNOEA [None]
